FAERS Safety Report 19759113 (Version 2)
Quarter: 2021Q4

REPORT INFORMATION
  Report Type: Spontaneous
  Country: US (occurrence: US)
  Receive Date: 20210827
  Receipt Date: 20211013
  Transmission Date: 20220303
  Serious: Yes (Death)
  Sender: FDA-Public Use
  Company Number: US-SAMSUNG BIOEPIS-SB-2020-25348

PATIENT
  Age: 32 Year
  Sex: Male
  Weight: 81.72 kg

DRUGS (3)
  1. RENFLEXIS [Suspect]
     Active Substance: INFLIXIMAB-ABDA
     Indication: Rheumatoid arthritis
     Route: 042
     Dates: start: 20200128
  2. SOLU-MEDROL [Concomitant]
     Active Substance: METHYLPREDNISOLONE SODIUM SUCCINATE
     Indication: Infusion related reaction
     Route: 042
     Dates: start: 20200623, end: 20200623
  3. BENADRYL [Concomitant]
     Active Substance: DIPHENHYDRAMINE HYDROCHLORIDE
     Indication: Infusion related reaction
     Route: 042
     Dates: start: 20200623, end: 20200623

REACTIONS (4)
  - Death [Fatal]
  - Product quality issue [Unknown]
  - Product contamination physical [Unknown]
  - Incorrect dose administered [Unknown]

NARRATIVE: CASE EVENT DATE: 20200623
